FAERS Safety Report 6658780-0 (Version None)
Quarter: 2010Q1

REPORT INFORMATION
  Report Type: 
  Country: None (occurrence: None)
  Receive Date: 20100330
  Receipt Date: 20100322
  Transmission Date: 20100710
  Serious: Yes (Death)
  Sender: FDA-Public Use
  Company Number: GXKR2010AT03405

PATIENT
  Age: 88 Year

DRUGS (5)
  1. LISINOPRIL+HYDROCHLOROTHIAZIDE SANDOZ (NGX) [Suspect]
     Dosage: 1 DF, QD
     Route: 048
  2. M-DOLOR [Suspect]
     Dosage: AS NEEDED
     Route: 048
  3. SUPRESSIN [Suspect]
     Dosage: 1 DF, QD
     Route: 048
  4. TEBOFORTAN [Suspect]
     Dosage: 1 DF, BID
     Route: 048
  5. SERENOA REPENS EXTRACT [Suspect]
     Dosage: 1 DF, QD
     Route: 048

REACTIONS (1)
  - COMPLETED SUICIDE [None]
